FAERS Safety Report 9404590 (Version 1)
Quarter: 2013Q3

REPORT INFORMATION
  Report Type: Spontaneous
  Country: US (occurrence: None)
  Receive Date: 20130716
  Receipt Date: 20130716
  Transmission Date: 20140515
  Serious: Yes (Hospitalization)
  Sender: FDA-Public Use
  Company Number: None

PATIENT
  Age: 75 Year
  Sex: Male
  Weight: 52.6 kg

DRUGS (2)
  1. ACETAMINOPHEN/OXYCODONE [Suspect]
     Indication: PAIN
     Route: 048
     Dates: start: 20130308, end: 20130620
  2. CLONAZEPAM [Suspect]
     Indication: ANXIETY
     Route: 048
     Dates: start: 20130325, end: 20130620

REACTIONS (3)
  - Agitation [None]
  - Confusional state [None]
  - Fall [None]
